FAERS Safety Report 14931975 (Version 1)
Quarter: 2018Q2

REPORT INFORMATION
  Report Type: Report from Study
  Country: US (occurrence: US)
  Receive Date: 20180524
  Receipt Date: 20180524
  Transmission Date: 20180711
  Serious: No
  Sender: FDA-Public Use
  Company Number: US-ACADIA PHARMACEUTICALS INC.-ACA-2018-007675

PATIENT
  Sex: Female

DRUGS (1)
  1. NUPLAZID [Suspect]
     Active Substance: PIMAVANSERIN TARTRATE
     Indication: NERVOUS SYSTEM DISORDER
     Dosage: 34 MG, QD
     Route: 065
     Dates: start: 20180215

REACTIONS (4)
  - Off label use [Unknown]
  - Gait disturbance [Unknown]
  - Confusional state [Unknown]
  - Insomnia [Unknown]
